FAERS Safety Report 9421754 (Version 5)
Quarter: 2015Q3

REPORT INFORMATION
  Report Type: Report from Study
  Country: CA (occurrence: CA)
  Receive Date: 20130726
  Receipt Date: 20150723
  Transmission Date: 20151125
  Serious: Yes (Other)
  Sender: FDA-Public Use
  Company Number: CA-ROCHE-1253340

PATIENT
  Sex: Female

DRUGS (15)
  1. SYNTHROID [Concomitant]
     Active Substance: LEVOTHYROXINE SODIUM
  2. SALBUTAMOL [Concomitant]
     Active Substance: ALBUTEROL
  3. RAMIPRIL. [Concomitant]
     Active Substance: RAMIPRIL
  4. DIPHENHYDRAMINE HCL [Concomitant]
     Active Substance: DIPHENHYDRAMINE HYDROCHLORIDE
     Indication: PREMEDICATION
     Route: 048
     Dates: start: 20120621
  5. ALENDRONATE [Concomitant]
     Active Substance: ALENDRONATE SODIUM
  6. HYDROMORPHONE [Concomitant]
     Active Substance: HYDROMORPHONE
  7. ACETAMINOPHEN. [Concomitant]
     Active Substance: ACETAMINOPHEN
     Indication: PREMEDICATION
     Route: 048
     Dates: start: 20120621
  8. PREDNISONE. [Suspect]
     Active Substance: PREDNISONE
     Indication: DERMATOMYOSITIS
     Route: 065
  9. METFORMIN [Concomitant]
     Active Substance: METFORMIN HYDROCHLORIDE
  10. TRIAMCINOLONE ACETATE [Concomitant]
     Active Substance: TRIAMCINOLONE ACETONIDE
  11. ADALAT [Concomitant]
     Active Substance: NIFEDIPINE
  12. METHYLPREDNISOLONE. [Concomitant]
     Active Substance: METHYLPREDNISOLONE
     Indication: PREMEDICATION
     Route: 042
     Dates: start: 20120621
  13. CELLCEPT [Concomitant]
     Active Substance: MYCOPHENOLATE MOFETIL\MYCOPHENOLATE MOFETIL HYDROCHLORIDE
  14. PIMECROLIMUS [Concomitant]
     Active Substance: PIMECROLIMUS
  15. RITUXAN [Suspect]
     Active Substance: RITUXIMAB
     Indication: DERMATOMYOSITIS
     Dosage: DAY 1 AND DAY 15
     Route: 042
     Dates: start: 20120621

REACTIONS (14)
  - Erythema [Unknown]
  - Off label use [Unknown]
  - Gastrooesophageal reflux disease [Not Recovered/Not Resolved]
  - Arthralgia [Unknown]
  - Herpes zoster [Recovered/Resolved]
  - Joint swelling [Unknown]
  - Fatigue [Not Recovered/Not Resolved]
  - Dyspnoea [Not Recovered/Not Resolved]
  - Herpes zoster [Not Recovered/Not Resolved]
  - Diabetic neuropathy [Unknown]
  - Cough [Not Recovered/Not Resolved]
  - Hyperglycaemia [Unknown]
  - Arthralgia [Recovering/Resolving]
  - Pyrexia [Not Recovered/Not Resolved]

NARRATIVE: CASE EVENT DATE: 2013
